FAERS Safety Report 19906874 (Version 1)
Quarter: 2021Q3

REPORT INFORMATION
  Report Type: Report from Study
  Country: CA (occurrence: CA)
  Receive Date: 20210930
  Receipt Date: 20210930
  Transmission Date: 20211014
  Serious: Yes (Other)
  Sender: FDA-Public Use
  Company Number: CA-TAKEDA-2021TUS059803

PATIENT
  Age: 42 Year
  Sex: Female

DRUGS (6)
  1. VEDOLIZUMAB [Suspect]
     Active Substance: VEDOLIZUMAB
     Dosage: 300 MILLIGRAM, Q4WEEKS
     Route: 042
     Dates: start: 20190522
  2. ASACOL [Concomitant]
     Active Substance: MESALAMINE
     Dosage: UNK UNK, BID
     Route: 048
     Dates: start: 200010
  3. URSO [Concomitant]
     Active Substance: URSODIOL
     Dosage: UNK
     Dates: start: 201607
  4. VEDOLIZUMAB [Suspect]
     Active Substance: VEDOLIZUMAB
     Indication: COLITIS ULCERATIVE
     Dosage: 300 MILLIGRAM
     Route: 042
     Dates: start: 20181127
  5. MEZAVANT [Concomitant]
     Active Substance: MESALAMINE
     Dosage: UNK
  6. HYDROCHLOROTHIAZIDE. [Concomitant]
     Active Substance: HYDROCHLOROTHIAZIDE
     Dosage: 12.5 MILLIGRAM

REACTIONS (3)
  - Poor venous access [Unknown]
  - Vein rupture [Unknown]
  - Off label use [Unknown]

NARRATIVE: CASE EVENT DATE: 20190522
